FAERS Safety Report 16254401 (Version 1)
Quarter: 2019Q2

REPORT INFORMATION
  Report Type: Spontaneous
  Country: US (occurrence: US)
  Receive Date: 20190430
  Receipt Date: 20190430
  Transmission Date: 20190711
  Serious: No
  Sender: FDA-Public Use
  Company Number: PHEH2019US017685

PATIENT
  Age: 86 Year
  Sex: Female

DRUGS (1)
  1. PAZEO [Suspect]
     Active Substance: OLOPATADINE HYDROCHLORIDE
     Indication: PRODUCT USED FOR UNKNOWN INDICATION
     Route: 065

REACTIONS (8)
  - Eye pain [Unknown]
  - Vision blurred [Unknown]
  - Nausea [Unknown]
  - Abnormal sensation in eye [Unknown]
  - Drug ineffective [Unknown]
  - Headache [Unknown]
  - Eye irritation [Unknown]
  - Eye pruritus [Unknown]
